FAERS Safety Report 18328670 (Version 1)
Quarter: 2020Q3

REPORT INFORMATION
  Report Type: Spontaneous
  Country: US (occurrence: US)
  Receive Date: 20200930
  Receipt Date: 20200930
  Transmission Date: 20201103
  Serious: No
  Sender: FDA-Public Use
  Company Number: US-ACCORD-167508

PATIENT
  Sex: Male

DRUGS (1)
  1. GLIMEPIRIDE. [Suspect]
     Active Substance: GLIMEPIRIDE
     Indication: DIABETES MELLITUS
     Dosage: TAKING 4 MG BUT LAST PRESCRIPTION FILLED WITH 2 MG

REACTIONS (2)
  - Product physical issue [Unknown]
  - Therapeutic response decreased [Unknown]
